FAERS Safety Report 9521020 (Version 2)
Quarter: 2014Q1

REPORT INFORMATION
  Report Type: Spontaneous
  Country: US (occurrence: None)
  Receive Date: 20130305
  Receipt Date: 20140306
  Transmission Date: 20141002
  Serious: Yes (Other)
  Sender: FDA-Public Use
  Company Number: 163-21880-11061016

PATIENT
  Age: 69 Year
  Sex: Male
  Weight: 99.8 kg

DRUGS (2)
  1. REVLIMID [Suspect]
     Indication: PLASMA CELL MYELOMA
     Dosage: 25 MG, 1 IN 1 D, PO?
     Route: 048
     Dates: start: 20100520
  2. COUMADIN (WARFARIN SODIUM) [Concomitant]

REACTIONS (19)
  - Skin hyperpigmentation [None]
  - Weight decreased [None]
  - Rash [None]
  - Neuropathy peripheral [None]
  - Paraesthesia [None]
  - Drug dose omission [None]
  - Blood test abnormal [None]
  - Fall [None]
  - Hypoaesthesia [None]
  - Muscle spasms [None]
  - Muscular weakness [None]
  - Bone pain [None]
  - Back pain [None]
  - Musculoskeletal pain [None]
  - Diarrhoea [None]
  - Pain in extremity [None]
  - Muscle spasms [None]
  - Decreased activity [None]
  - Decreased appetite [None]
